FAERS Safety Report 17755692 (Version 1)
Quarter: 2020Q2

REPORT INFORMATION
  Report Type: Spontaneous
  Country: US (occurrence: US)
  Receive Date: 20200506
  Receipt Date: 20200506
  Transmission Date: 20200714
  Serious: No
  Sender: FDA-Public Use
  Company Number: None

PATIENT
  Age: 57 Year
  Sex: Male
  Weight: 81 kg

DRUGS (3)
  1. COPAXONE [Suspect]
     Active Substance: GLATIRAMER ACETATE
     Indication: MULTIPLE SCLEROSIS
     Dosage: ?          QUANTITY:6 INJECTION(S);OTHER FREQUENCY:THREE TIMES A WEEK;?
     Route: 058
  2. TYLENOL [Concomitant]
     Active Substance: ACETAMINOPHEN
  3. CLARITIN [Concomitant]
     Active Substance: LORATADINE

REACTIONS (5)
  - Needle issue [None]
  - Injury associated with device [None]
  - Product dose omission [None]
  - Device malfunction [None]
  - Syringe issue [None]

NARRATIVE: CASE EVENT DATE: 20200503
